FAERS Safety Report 11656967 (Version 1)
Quarter: 2015Q4

REPORT INFORMATION
  Report Type: Spontaneous
  Country: US (occurrence: US)
  Receive Date: 20151023
  Receipt Date: 20151023
  Transmission Date: 20160304
  Serious: No
  Sender: FDA-Public Use
  Company Number: US-ACTELION PHARMACEUTICALS US, INC.-A-NJ2015-117583

PATIENT
  Age: 30 Year
  Sex: Female

DRUGS (2)
  1. ADCIRCA [Concomitant]
     Active Substance: TADALAFIL
  2. VELETRI [Suspect]
     Active Substance: EPOPROSTENOL
     Indication: PULMONARY ARTERIAL HYPERTENSION
     Dosage: 12 UNK, UNK
     Route: 042
     Dates: start: 20141107

REACTIONS (9)
  - Vomiting [Unknown]
  - Catheter site scab [Unknown]
  - Device breakage [Unknown]
  - Diarrhoea [Unknown]
  - Oxygen consumption increased [Unknown]
  - Abdominal distension [Unknown]
  - Pain in jaw [Unknown]
  - Pain in extremity [Unknown]
  - Nausea [Unknown]
